FAERS Safety Report 17575834 (Version 1)
Quarter: 2020Q1

REPORT INFORMATION
  Report Type: Spontaneous
  Country: US (occurrence: US)
  Receive Date: 20200318
  Receipt Date: 20200318
  Transmission Date: 20200409
  Serious: No
  Sender: FDA-Public Use
  Company Number: None

PATIENT
  Age: 69 Year
  Sex: Male

DRUGS (4)
  1. RAPAFLO [Concomitant]
     Active Substance: SILODOSIN
  2. ERLEADA [Suspect]
     Active Substance: APALUTAMIDE
     Route: 048
     Dates: start: 20191213
  3. LOSARTAN. [Concomitant]
     Active Substance: LOSARTAN
  4. CIALIS [Concomitant]
     Active Substance: TADALAFIL

REACTIONS (3)
  - Fatigue [None]
  - Dizziness [None]
  - Dyspnoea exertional [None]

NARRATIVE: CASE EVENT DATE: 20200318
